FAERS Safety Report 11225215 (Version 2)
Quarter: 2015Q3

REPORT INFORMATION
  Report Type: Spontaneous
  Country: US (occurrence: US)
  Receive Date: 20150629
  Receipt Date: 20150820
  Transmission Date: 20151125
  Serious: Yes (Hospitalization, Disabling, Other)
  Sender: FDA-Public Use
  Company Number: US-MERCK-1506USA014857

PATIENT
  Sex: Male
  Weight: 112.47 kg

DRUGS (2)
  1. JANUVIA [Suspect]
     Active Substance: SITAGLIPTIN PHOSPHATE
     Indication: TYPE 2 DIABETES MELLITUS
     Dosage: UNK, QD
     Route: 048
     Dates: start: 201003
  2. JANUMET [Suspect]
     Active Substance: METFORMIN HYDROCHLORIDE\SITAGLIPTIN PHOSPHATE
     Indication: TYPE 2 DIABETES MELLITUS
     Dosage: 100 MG/1000 MG, QD
     Route: 048
     Dates: start: 20100327, end: 20130724

REACTIONS (36)
  - Treatment noncompliance [Unknown]
  - Dehydration [Unknown]
  - Diabetic neuropathy [Unknown]
  - Renal disorder [Unknown]
  - Hepatomegaly [Unknown]
  - Pancreatic stent placement [Unknown]
  - Sciatica [Unknown]
  - Atelectasis [Unknown]
  - Pancreatic calcification [Unknown]
  - Pyrexia [Unknown]
  - Intervertebral disc protrusion [Unknown]
  - Pulmonary mass [Unknown]
  - Abdominal pain [Unknown]
  - Diabetic ketoacidosis [Unknown]
  - Rash pruritic [Recovering/Resolving]
  - Bacterial disease carrier [Unknown]
  - Myocardial infarction [Unknown]
  - Pancreatitis chronic [Not Recovered/Not Resolved]
  - Nephrolithiasis [Unknown]
  - Abdominal lymphadenopathy [Unknown]
  - Essential hypertension [Unknown]
  - Vomiting [Unknown]
  - Gastrointestinal dysplasia [Unknown]
  - Hypoaesthesia [Unknown]
  - Hypertension [Unknown]
  - Hepatic steatosis [Unknown]
  - Pancreaticoduodenectomy [Unknown]
  - Retinopathy [Unknown]
  - Chest pain [Unknown]
  - Drug ineffective [Unknown]
  - Pancreatolithiasis [Unknown]
  - Aortic arteriosclerosis [Unknown]
  - Dyspnoea [Unknown]
  - Nausea [Unknown]
  - Arthralgia [Unknown]
  - Nausea [Unknown]

NARRATIVE: CASE EVENT DATE: 2013
